FAERS Safety Report 12714387 (Version 1)
Quarter: 2016Q3

REPORT INFORMATION
  Report Type: Spontaneous
  Country: US (occurrence: US)
  Receive Date: 20160905
  Receipt Date: 20160905
  Transmission Date: 20161109
  Serious: No
  Sender: FDA-Public Use
  Company Number: US-JAZZ-2016-US-009018

PATIENT
  Sex: Female

DRUGS (68)
  1. ASCORBIC ACID. [Concomitant]
     Active Substance: ASCORBIC ACID
  2. GLUTATHIONE [Concomitant]
     Active Substance: GLUTATHIONE
  3. TAURINE [Concomitant]
     Active Substance: TAURINE
  4. KETOCONAZOLE. [Concomitant]
     Active Substance: KETOCONAZOLE
  5. AZITHROMYCIN ANHYDROUS. [Concomitant]
     Active Substance: AZITHROMYCIN ANHYDROUS
  6. LORATADINE. [Concomitant]
     Active Substance: LORATADINE
  7. ACAI [Concomitant]
  8. FISH OIL [Concomitant]
     Active Substance: FISH OIL
  9. DILTIAZEM ER [Concomitant]
     Active Substance: DILTIAZEM
  10. METHYLCOBALAMIN. [Concomitant]
     Active Substance: METHYLCOBALAMIN
  11. ONDANSETRON ODT [Concomitant]
     Active Substance: ONDANSETRON
  12. TURMERIC [Concomitant]
     Active Substance: TURMERIC
  13. VIVELLE [Concomitant]
     Active Substance: ESTRADIOL
  14. VYVANSE [Concomitant]
     Active Substance: LISDEXAMFETAMINE DIMESYLATE
  15. FLAXSEED [Concomitant]
     Active Substance: FLAX SEED
  16. VITAMIN D3 [Concomitant]
     Active Substance: CHOLECALCIFEROL
  17. NADOLOL. [Concomitant]
     Active Substance: NADOLOL
  18. ALLERGAN [Concomitant]
     Active Substance: PAPAIN
  19. DL-PHENYLALANINE [Concomitant]
     Active Substance: PHENYLALANINE, DL-
  20. EXCEDRIN MIGRAINE [Concomitant]
     Active Substance: ACETAMINOPHEN\ASPIRIN\CAFFEINE
  21. XYREM [Suspect]
     Active Substance: SODIUM OXYBATE
     Indication: NARCOLEPSY
     Dosage: 2.25 G, BID
     Route: 048
     Dates: start: 201007, end: 201008
  22. L-THEANINE [Concomitant]
     Active Substance: DIETARY SUPPLEMENT
  23. ALPHA LIPOIC ACID [Concomitant]
     Active Substance: .ALPHA.-LIPOIC ACID
  24. PROGESTERONE. [Concomitant]
     Active Substance: PROGESTERONE
  25. DIGESTIVE ENZYMES [Concomitant]
     Active Substance: UNSPECIFIED INGREDIENT
  26. CETIRIZINE HCL [Concomitant]
     Active Substance: CETIRIZINE HYDROCHLORIDE
  27. EPIPEN JR [Concomitant]
     Active Substance: EPINEPHRINE
  28. FEXOFENADINE HCL [Concomitant]
     Active Substance: FEXOFENADINE HYDROCHLORIDE
  29. YUCCA ROOT [Concomitant]
  30. NALTREXONE [Concomitant]
     Active Substance: NALTREXONE
  31. PROBIOTIC [Concomitant]
     Active Substance: PROBIOTICS NOS
  32. SALT [Concomitant]
     Active Substance: SODIUM CHLORIDE
  33. MINOCYCLINE [Concomitant]
     Active Substance: MINOCYCLINE\MINOCYCLINE HYDROCHLORIDE
  34. AMITRIPTYLINE HCL [Concomitant]
     Active Substance: AMITRIPTYLINE
  35. HYDROCORTISONE ACETATE. [Concomitant]
     Active Substance: HYDROCORTISONE ACETATE
  36. GASTROCROM [Concomitant]
     Active Substance: CROMOLYN SODIUM
  37. CROMOLYN SODIUM. [Concomitant]
     Active Substance: CROMOLYN SODIUM
  38. MIGRANAL [Concomitant]
     Active Substance: DIHYDROERGOTAMINE MESYLATE
  39. BIOTIN [Concomitant]
     Active Substance: BIOTIN
  40. GUAIFENESIN ER [Concomitant]
     Active Substance: GUAIFENESIN
  41. SLIPPERY ELM [Concomitant]
     Active Substance: ELM
  42. ACIDOPHILUS [Concomitant]
     Active Substance: LACTOBACILLUS ACIDOPHILUS
  43. XYREM [Suspect]
     Active Substance: SODIUM OXYBATE
     Indication: CATAPLEXY
     Dosage: DOSE ADJUSTMENTS
     Route: 048
  44. OLIVE LEAF EXTRACT [Concomitant]
  45. CHLORZOXAZONE. [Concomitant]
     Active Substance: CHLORZOXAZONE
  46. CIMETIDINE [Concomitant]
     Active Substance: CIMETIDINE
  47. COQ10 [Concomitant]
     Active Substance: UBIDECARENONE
  48. CALCIUM CARBONATE. [Concomitant]
     Active Substance: CALCIUM CARBONATE
  49. MOLYBDENUM [Concomitant]
     Active Substance: MOLYBDENUM
  50. RHODIOLA [Concomitant]
     Active Substance: HERBALS
  51. SUMATRIPTAN SUCCINATE. [Concomitant]
     Active Substance: SUMATRIPTAN SUCCINATE
  52. LYRICA [Concomitant]
     Active Substance: PREGABALIN
  53. XYREM [Suspect]
     Active Substance: SODIUM OXYBATE
     Dosage: 3.5 G, BID
     Route: 048
     Dates: start: 2011
  54. DEXAMETHASONE. [Concomitant]
     Active Substance: DEXAMETHASONE
  55. FLONASE [Concomitant]
     Active Substance: FLUTICASONE PROPIONATE
  56. L-METHIONINE [Concomitant]
  57. MAGNESIUM GLUCONATE [Concomitant]
     Active Substance: MAGNESIUM GLUCONATE
  58. VITAMIN B12 [Concomitant]
     Active Substance: CYANOCOBALAMIN
  59. DIHYDROERGOTAMINE [Concomitant]
     Active Substance: DIHYDROERGOTAMINE
  60. BOSWELLIA SERRATA [Concomitant]
  61. 5-HTP [Concomitant]
     Active Substance: OXITRIPTAN
  62. CURCUMIN [Concomitant]
     Active Substance: CURCUMIN
  63. MILK THISTLE [Concomitant]
     Active Substance: MILK THISTLE
  64. QUERCETIN DIHYDRATE [Concomitant]
  65. VITAMIN B6 [Concomitant]
     Active Substance: PYRIDOXINE HYDROCHLORIDE
  66. VERAPAMIL ER [Concomitant]
     Active Substance: VERAPAMIL HYDROCHLORIDE
  67. GLUCOSAMINE SULFATE [Concomitant]
     Active Substance: GLUCOSAMINE SULFATE
  68. MAGNEBIND [Concomitant]

REACTIONS (1)
  - Oral pain [Unknown]
